FAERS Safety Report 8236600-0 (Version None)
Quarter: 2012Q1

REPORT INFORMATION
  Report Type: 
  Country: None (occurrence: None)
  Receive Date: 20120309
  Receipt Date: 20110815
  Transmission Date: 20120608
  Serious: Yes (Hospitalization, Other)
  Sender: FDA-Public Use
  Company Number: PHHY2010US64827

PATIENT
  Age: 38 Year
  Sex: Male

DRUGS (7)
  1. STEROIDS NOS (NO INGREDIENTS/SUBSTANCES) [Concomitant]
  2. EXTAVIA [Suspect]
     Indication: MULTIPLE SCLEROSIS
     Dosage: 0.25 MG, (1 ML), QOD, SUBCUTANEOUS
     Route: 058
     Dates: start: 20100916
  3. EXTAVIA [Suspect]
     Indication: MULTIPLE SCLEROSIS
     Dosage: 0.25 MG, (1 ML), QOD, SUBCUTANEOUS
     Route: 058
     Dates: start: 20100601
  4. PREDNISONE TAB [Concomitant]
  5. BACLOFEN [Concomitant]
  6. ZOLOFT [Concomitant]
  7. ADVIL (MEFENAMIC ACID) [Concomitant]

REACTIONS (21)
  - MUSCLE SPASMS [None]
  - DRUG INEFFECTIVE [None]
  - PAIN IN EXTREMITY [None]
  - MULTIPLE SCLEROSIS RELAPSE [None]
  - HYPERTENSION [None]
  - MEMORY IMPAIRMENT [None]
  - INSOMNIA [None]
  - HYPOAESTHESIA [None]
  - GAIT DISTURBANCE [None]
  - DEPRESSED MOOD [None]
  - FATIGUE [None]
  - VISION BLURRED [None]
  - IRRITABILITY [None]
  - FEELING ABNORMAL [None]
  - DYSURIA [None]
  - THOUGHT BLOCKING [None]
  - CONSTIPATION [None]
  - COORDINATION ABNORMAL [None]
  - WEIGHT INCREASED [None]
  - HEADACHE [None]
  - DIZZINESS [None]
